FAERS Safety Report 8901645 (Version 1)
Quarter: 2012Q4

REPORT INFORMATION
  Report Type: Spontaneous
  Country: US (occurrence: None)
  Receive Date: 20121031
  Receipt Date: 20121031
  Transmission Date: 20130627
  Serious: Yes (Life-Threatening)
  Sender: FDA-Public Use
  Company Number: 1467441

PATIENT
  Age: 78 Year
  Sex: Male

DRUGS (3)
  1. EPIRUBICIN HYDROCHLORIDE [Suspect]
     Indication: METASTATIC GASTRIC CANCER
     Dosage: Cyclical
  2. OXALIPLATIN [Suspect]
     Indication: METASTATIC GASTRIC CANCER
     Dosage: cyclical
  3. CAPECITABINE [Suspect]
     Indication: METASTATIC GASTRIC CANCER
     Dosage: Cyclical

REACTIONS (8)
  - Renal failure acute [None]
  - Haemodynamic instability [None]
  - Dehydration [None]
  - Diarrhoea [None]
  - Continuous haemodiafiltration [None]
  - Intestinal dilatation [None]
  - General physical health deterioration [None]
  - Clostridium difficile colitis [None]
